FAERS Safety Report 25933528 (Version 1)
Quarter: 2025Q4

REPORT INFORMATION
  Report Type: Spontaneous
  Country: TW (occurrence: TW)
  Receive Date: 20251017
  Receipt Date: 20251017
  Transmission Date: 20260117
  Serious: Yes (Hospitalization)
  Sender: CHEPLAPHARM
  Company Number: TW-CHEPLA-2025011902

PATIENT
  Age: 34 Year
  Sex: Male

DRUGS (2)
  1. OLANZAPINE [Suspect]
     Active Substance: OLANZAPINE
     Indication: Schizophrenia
     Dosage: DAILY DOSE: 20 MILLIGRAM
  2. FLUPENTIXOL DECANOATE [Suspect]
     Active Substance: FLUPENTIXOL DECANOATE
     Dosage: FOR THE PAST 6 YEARS

REACTIONS (12)
  - Polydipsia [Recovering/Resolving]
  - Hyponatraemia [Recovering/Resolving]
  - Leukocytosis [Recovering/Resolving]
  - Rhabdomyolysis [Recovering/Resolving]
  - Osmotic demyelination syndrome [Recovering/Resolving]
  - Urinary tract infection [Recovering/Resolving]
  - Ileus [Recovering/Resolving]
  - Extrapyramidal disorder [Recovering/Resolving]
  - Pneumonia aspiration [Recovering/Resolving]
  - COVID-19 [Recovered/Resolved]
  - Restlessness [Unknown]
  - Sleep disorder [Unknown]

NARRATIVE: CASE EVENT DATE: 20230607
